FAERS Safety Report 5896944-4 (Version None)
Quarter: 2008Q3

REPORT INFORMATION
  Report Type: 
  Country: None (occurrence: None)
  Receive Date: 20080924
  Receipt Date: 20080116
  Transmission Date: 20090109
  Serious: Yes (Other)
  Sender: FDA-Public Use
  Company Number: US-ASTRAZENECA-2008UW01233

PATIENT
  Age: 15 Year
  Sex: Male

DRUGS (5)
  1. SEROQUEL [Suspect]
     Indication: DEPRESSION
     Route: 048
     Dates: start: 20071101
  2. SEROQUEL [Suspect]
     Route: 048
  3. SEROQUEL [Suspect]
     Route: 048
     Dates: end: 20071201
  4. CONCERTA [Concomitant]
  5. MELATONIN [Concomitant]

REACTIONS (3)
  - DEPRESSED MOOD [None]
  - RESPIRATION ABNORMAL [None]
  - SUICIDAL IDEATION [None]
